FAERS Safety Report 7405026-1 (Version None)
Quarter: 2011Q2

REPORT INFORMATION
  Report Type: 
  Country: None (occurrence: None)
  Receive Date: 20110411
  Receipt Date: 20110329
  Transmission Date: 20111010
  Serious: Yes (Other)
  Sender: FDA-Public Use
  Company Number: US-SOLVAY-00211002697

PATIENT
  Sex: Male

DRUGS (1)
  1. ANDROGEL [Suspect]
     Indication: PRODUCT USED FOR UNKNOWN INDICATION
     Dosage: DAILY DOSE:  UNKNOWN
     Route: 062

REACTIONS (2)
  - PULMONARY EMBOLISM [None]
  - ARTHROPATHY [None]
